FAERS Safety Report 25245361 (Version 1)
Quarter: 2025Q2

REPORT INFORMATION
  Report Type: Report from Study
  Country: PT (occurrence: PT)
  Receive Date: 20250428
  Receipt Date: 20250428
  Transmission Date: 20250716
  Serious: Yes (Hospitalization, Other)
  Sender: ROCHE
  Company Number: PT-ROCHE-10000269886

PATIENT

DRUGS (2)
  1. RITUXIMAB [Suspect]
     Active Substance: RITUXIMAB
     Indication: Multiple sclerosis
     Route: 065
  2. OCRELIZUMAB [Suspect]
     Active Substance: OCRELIZUMAB
     Indication: Multiple sclerosis
     Route: 065

REACTIONS (7)
  - Lymphopenia [Unknown]
  - Hypogammaglobulinaemia [Unknown]
  - Myalgia [Unknown]
  - Febrile neutropenia [Unknown]
  - Sepsis [Unknown]
  - Hyperhidrosis [Unknown]
  - Crohn^s disease [Unknown]
